FAERS Safety Report 9646613 (Version 2)
Quarter: 2014Q1

REPORT INFORMATION
  Report Type: Report from Study
  Country: IT (occurrence: IT)
  Receive Date: 20131026
  Receipt Date: 20140204
  Transmission Date: 20141002
  Serious: Yes (Hospitalization)
  Sender: FDA-Public Use
  Company Number: IT-AMGEN-ITACT2013074914

PATIENT
  Age: 48 Year
  Sex: Female
  Weight: 52 kg

DRUGS (8)
  1. PANITUMUMAB [Suspect]
     Indication: BILIARY NEOPLASM
     Dosage: 6 MG/KG, Q2WK
     Route: 042
     Dates: start: 20130715
  2. GEMCITABINE [Concomitant]
     Dosage: 1000 MG/KG, Q2WK
     Route: 042
     Dates: start: 20130715
  3. OXALIPLATIN [Concomitant]
     Dosage: 100 MG/KG, Q2WK
     Route: 042
     Dates: start: 20130715
  4. MORPHINE SULFATE [Concomitant]
     Indication: PAIN
     Dosage: 120 MG, UNK
     Route: 048
     Dates: start: 201306
  5. POTASSIUM [Concomitant]
     Indication: HYPOKALAEMIA
     Dosage: 1200 MG, UNK
     Route: 048
     Dates: start: 201307
  6. OMEPRAZOLE [Concomitant]
     Indication: PROPHYLAXIS AGAINST GASTROINTESTINAL ULCER
     Dosage: 20 MG, UNK
     Route: 048
     Dates: start: 201306
  7. PREDNISONE                         /00044702/ [Concomitant]
     Indication: SUPPORTIVE CARE
     Dosage: 25 MG, UNK
     Route: 048
     Dates: start: 201306
  8. KETOPROFEN [Concomitant]
     Indication: PAIN
     Dosage: 200 MG, UNK
     Route: 048
     Dates: start: 201306

REACTIONS (3)
  - Nausea [Recovered/Resolved]
  - Diarrhoea [Recovered/Resolved]
  - Abdominal pain [Recovered/Resolved]
